FAERS Safety Report 8307241-1 (Version None)
Quarter: 2012Q1

REPORT INFORMATION
  Report Type: 
  Country: None (occurrence: None)
  Receive Date: 20120327
  Receipt Date: 20090804
  Transmission Date: 20120608
  Serious: Yes (Other)
  Sender: FDA-Public Use
  Company Number: PHEH2009US07203

PATIENT
  Age: 77 Year
  Sex: Male
  Weight: 70.3 kg

DRUGS (1)
  1. GLEEVEC [Suspect]
     Indication: GASTROINTESTINAL STROMAL TUMOUR
     Dosage: 400 MG, QD, ORAL
     Route: 048
     Dates: start: 20090115, end: 20090604

REACTIONS (4)
  - RASH [None]
  - WOUND SECRETION [None]
  - SKIN DISCOLOURATION [None]
  - OEDEMA PERIPHERAL [None]
